FAERS Safety Report 10170454 (Version 1)
Quarter: 2014Q2

REPORT INFORMATION
  Report Type: Spontaneous
  Country: US (occurrence: US)
  Receive Date: 20140513
  Receipt Date: 20140513
  Transmission Date: 20141212
  Serious: Yes (Other)
  Sender: FDA-Public Use
  Company Number: PHEH2014US009440

PATIENT
  Sex: Female

DRUGS (3)
  1. RECLAST [Suspect]
     Dosage: ANNUALLY
     Route: 042
  2. RECLAST [Suspect]
     Dosage: ANNUALLY
     Route: 042
  3. RECLAST [Suspect]
     Dosage: ANNUALLY
     Route: 042

REACTIONS (3)
  - Diabetic foot [Unknown]
  - Tooth fracture [Unknown]
  - Bone disorder [Unknown]
